FAERS Safety Report 10666651 (Version 4)
Quarter: 2015Q1

REPORT INFORMATION
  Report Type: Report from Study
  Country: PL (occurrence: PL)
  Receive Date: 20141222
  Receipt Date: 20150225
  Transmission Date: 20150720
  Serious: Yes (Hospitalization)
  Sender: FDA-Public Use
  Company Number: PL-ROCHE-1506657

PATIENT
  Age: 54 Year
  Sex: Male
  Weight: 47 kg

DRUGS (3)
  1. POLTRAM [Concomitant]
     Indication: PAIN
     Route: 065
     Dates: start: 20131003
  2. VISMODEGIB [Suspect]
     Active Substance: VISMODEGIB
     Route: 048
     Dates: start: 20150120
  3. VISMODEGIB [Suspect]
     Active Substance: VISMODEGIB
     Indication: BASAL CELL CARCINOMA
     Dosage: LAST DOSE PRIOR TO SAES: 23/NOV/2014. INTERRUPTED IN RESPONSE TO ANEMIA.?ON 24/NOV/2014 STOPPED, RES
     Route: 048
     Dates: start: 20130812, end: 20141124

REACTIONS (2)
  - Anaemia [Recovered/Resolved]
  - Ischaemic stroke [Recovered/Resolved]

NARRATIVE: CASE EVENT DATE: 20141124
